FAERS Safety Report 5814329-3 (Version None)
Quarter: 2008Q3

REPORT INFORMATION
  Report Type: 
  Country: None (occurrence: None)
  Receive Date: 20080715
  Receipt Date: 20080701
  Transmission Date: 20090109
  Serious: Yes (Other)
  Sender: FDA-Public Use
  Company Number: 2008S1004050

PATIENT
  Age: 25 Year
  Sex: Male
  Weight: 77.1115 kg

DRUGS (4)
  1. PHENYTON SODIUM 1GR CAP [Suspect]
     Indication: CONVULSION PROPHYLAXIS
     Dosage: 400 MG; DAILY; ORAL
     Route: 048
     Dates: start: 20060101
  2. PHENYTON SODIUM 1GR CAP [Suspect]
     Indication: NEUROFIBROMATOSIS
     Dosage: 400 MG; DAILY; ORAL
     Route: 048
     Dates: start: 20060101
  3. PHENYTON SODIUM 1GR CAP [Suspect]
  4. PHENYTON SODIUM 1GR CAP [Suspect]

REACTIONS (6)
  - ANTICONVULSANT DRUG LEVEL BELOW THERAPEUTIC [None]
  - CONVULSION [None]
  - DRUG INEFFECTIVE [None]
  - FALL [None]
  - HEAD INJURY [None]
  - PHARMACEUTICAL PRODUCT COMPLAINT [None]
